FAERS Safety Report 12176107 (Version 1)
Quarter: 2016Q1

REPORT INFORMATION
  Report Type: Spontaneous
  Country: BR (occurrence: BR)
  Receive Date: 20160314
  Receipt Date: 20160314
  Transmission Date: 20160526
  Serious: Yes (Other)
  Sender: FDA-Public Use
  Company Number: CHPA2016BR003016

PATIENT
  Sex: Male

DRUGS (2)
  1. OTRIVINA [Suspect]
     Active Substance: XYLOMETAZOLINE
     Indication: RHINITIS
     Dosage: UNK
     Route: 065
  2. OTRIVINA [Suspect]
     Active Substance: XYLOMETAZOLINE
     Indication: PRODUCT USED FOR UNKNOWN INDICATION
     Dosage: UNK
     Route: 065

REACTIONS (3)
  - Malaise [Unknown]
  - Influenza [Unknown]
  - Dengue fever [Unknown]
